FAERS Safety Report 15597955 (Version 1)
Quarter: 2018Q4

REPORT INFORMATION
  Report Type: Spontaneous
  Country: US (occurrence: US)
  Receive Date: 20181108
  Receipt Date: 20181108
  Transmission Date: 20190205
  Serious: No
  Sender: FDA-Public Use
  Company Number: US-PFIZER INC-2018447103

PATIENT
  Age: 79 Year
  Sex: Male
  Weight: 68 kg

DRUGS (6)
  1. EFFEXOR XR [Concomitant]
     Active Substance: VENLAFAXINE HYDROCHLORIDE
     Indication: DEPRESSION
     Dosage: 300 MG, 1X/DAY(2 - 150 MG CAPSULES )
     Route: 048
     Dates: start: 2007
  2. OXYMORPHONE [Suspect]
     Active Substance: OXYMORPHONE
     Indication: PAIN
     Dosage: 40 MG, 1X/DAY (40 MG IN THE MORNING)
     Route: 048
  3. OXYMORPHONE [Suspect]
     Active Substance: OXYMORPHONE
     Dosage: 30 MG, 1X/DAY (30 MG AT NIGHT)
     Route: 048
  4. EFFEXOR XR [Concomitant]
     Active Substance: VENLAFAXINE HYDROCHLORIDE
     Dosage: 600 MG, 1X/DAY(300 MG, BY MOUTH, TWO CAPSULE ONCE A DAY)
     Route: 048
  5. XANAX [Suspect]
     Active Substance: ALPRAZOLAM
     Indication: DEPRESSION
     Dosage: 600 MG, 1X/DAY (300 MG, TWO ONCE A DAY)
     Route: 048
  6. GABAPENTIN. [Suspect]
     Active Substance: GABAPENTIN
     Indication: NEURALGIA
     Dosage: 300 MG, DAILY (100 MG, ONCE IN THE MORNING AND TWO AT NIGHT)
     Route: 048

REACTIONS (2)
  - Respiratory rate decreased [Unknown]
  - Disturbance in attention [Unknown]
